FAERS Safety Report 9357530 (Version 1)
Quarter: 2013Q2

REPORT INFORMATION
  Report Type: Spontaneous
  Country: US (occurrence: US)
  Receive Date: 20130620
  Receipt Date: 20130620
  Transmission Date: 20140414
  Serious: No
  Sender: FDA-Public Use
  Company Number: US-BAYER-2013-074600

PATIENT
  Sex: Male
  Weight: 122 kg

DRUGS (6)
  1. BETASERON [Suspect]
  2. JANUVIA [Concomitant]
     Dosage: 25 MG, UNK
  3. METFORMIN [Concomitant]
     Dosage: 850 MG, UNK
  4. RIFAMPIN [Concomitant]
     Dosage: 150 MG, UNK
  5. ADDERALL [Concomitant]
     Dosage: 30 MG, UNK
  6. HUMALOG PEN MIX [Concomitant]

REACTIONS (2)
  - Blood glucose abnormal [Unknown]
  - Hepatic enzyme abnormal [Unknown]
